FAERS Safety Report 24269913 (Version 1)
Quarter: 2024Q3

REPORT INFORMATION
  Report Type: Spontaneous
  Country: US (occurrence: US)
  Receive Date: 20240830
  Receipt Date: 20240830
  Transmission Date: 20241017
  Serious: Yes (Other)
  Sender: BRISTOL MYERS SQUIBB
  Company Number: US-BRISTOL-MYERS SQUIBB COMPANY-2024-134610

PATIENT
  Age: 65 Year
  Sex: Male
  Weight: 147.2 kg

DRUGS (1)
  1. LENALIDOMIDE [Suspect]
     Active Substance: LENALIDOMIDE
     Indication: Plasma cell myeloma
     Route: 048
     Dates: start: 20240308

REACTIONS (3)
  - Bronchitis [Recovered/Resolved]
  - Plasma cell myeloma [Unknown]
  - Pulmonary oedema [Recovered/Resolved]
